FAERS Safety Report 5499027-0 (Version None)
Quarter: 2007Q4

REPORT INFORMATION
  Report Type: 
  Country: None (occurrence: None)
  Receive Date: 20071026
  Receipt Date: 20070516
  Transmission Date: 20080405
  Serious: No
  Sender: FDA-Public Use
  Company Number: A0652016A

PATIENT
  Sex: Male

DRUGS (2)
  1. ADVAIR DISKUS 100/50 [Suspect]
     Indication: CHRONIC OBSTRUCTIVE PULMONARY DISEASE
     Dosage: 2PUFF PER DAY
     Route: 055
  2. SPIRIVA [Suspect]
     Dosage: 1CAP PER DAY
     Route: 048

REACTIONS (6)
  - ABDOMINAL DISTENSION [None]
  - ANOREXIA [None]
  - GASTRIC DISORDER [None]
  - NAUSEA [None]
  - OROPHARYNGEAL CANDIDIASIS [None]
  - VOMITING [None]
